FAERS Safety Report 5396163-4 (Version None)
Quarter: 2007Q3

REPORT INFORMATION
  Report Type: 
  Country: None (occurrence: None)
  Receive Date: 20070725
  Receipt Date: 20070719
  Transmission Date: 20080115
  Serious: Yes (Hospitalization)
  Sender: FDA-Public Use
  Company Number: PHBS2007TR12209

PATIENT
  Age: 28 Year
  Sex: Male

DRUGS (6)
  1. CLOMIPRAMINE HCL [Suspect]
     Indication: OVERDOSE
     Dosage: 750 MG
     Route: 048
  2. MAPROTILINE HYDROCHLORIDE [Suspect]
     Indication: OVERDOSE
     Dosage: 350 MG
     Route: 048
  3. OXCARBAZEPINE [Suspect]
     Indication: OVERDOSE
     Dosage: 12000 MG
     Route: 048
  4. VENLAFAXINE HCL [Suspect]
     Indication: OVERDOSE
     Dosage: 1050 MG
     Route: 048
  5. CITALOPRAM HYDROBROMIDE [Suspect]
     Indication: OVERDOSE
     Dosage: 240 MG
     Route: 048
  6. DIAZEPAM [Suspect]
     Indication: OVERDOSE
     Dosage: 45 MG
     Route: 048

REACTIONS (5)
  - GLASGOW COMA SCALE ABNORMAL [None]
  - INTUBATION [None]
  - MULTIPLE DRUG OVERDOSE [None]
  - OVERDOSE [None]
  - THERAPEUTIC AGENT TOXICITY [None]
